FAERS Safety Report 6329727-1 (Version None)
Quarter: 2009Q3

REPORT INFORMATION
  Report Type: 
  Country: None (occurrence: None)
  Receive Date: 20090826
  Receipt Date: 20090818
  Transmission Date: 20100115
  Serious: Yes (Death)
  Sender: FDA-Public Use
  Company Number: US-ABBOTT-09P-163-0591796-00

PATIENT
  Sex: Female
  Weight: 91.118 kg

DRUGS (10)
  1. SYNTHROID [Suspect]
     Indication: DRUG USE FOR UNKNOWN INDICATION
  2. ANASTROZOLE [Suspect]
     Indication: BREAST CANCER
     Route: 048
     Dates: start: 20060118
  3. NORVASC [Suspect]
     Indication: DRUG USE FOR UNKNOWN INDICATION
  4. GLIBENCLAMIDE [Suspect]
     Indication: DRUG USE FOR UNKNOWN INDICATION
  5. METFORMIN HCL [Suspect]
     Indication: DRUG USE FOR UNKNOWN INDICATION
  6. HYDROCHLOROTHIAZIDE [Suspect]
     Indication: DRUG USE FOR UNKNOWN INDICATION
  7. ASPIRIN [Suspect]
     Indication: DRUG USE FOR UNKNOWN INDICATION
  8. CALCIUM W/VITAMIN D [Suspect]
     Indication: DRUG USE FOR UNKNOWN INDICATION
  9. COZAAR [Suspect]
     Indication: DRUG USE FOR UNKNOWN INDICATION
  10. BONIVA [Suspect]
     Indication: DRUG USE FOR UNKNOWN INDICATION

REACTIONS (1)
  - MYOCARDIAL INFARCTION [None]
